FAERS Safety Report 21799509 (Version 1)
Quarter: 2022Q4

REPORT INFORMATION
  Report Type: Spontaneous
  Country: US (occurrence: None)
  Receive Date: 20221230
  Receipt Date: 20221230
  Transmission Date: 20230113
  Serious: Yes (Hospitalization)
  Sender: FDA-Public Use
  Company Number: None

PATIENT
  Age: 81 Year
  Sex: Female
  Weight: 94.35 kg

DRUGS (14)
  1. LENALIDOMIDE [Suspect]
     Active Substance: LENALIDOMIDE
     Indication: Plasma cell myeloma
     Dosage: 10MG 14D ON 7D OFF ORAL?
     Route: 048
     Dates: start: 20221006, end: 20221229
  2. CICLOPIROX [Concomitant]
     Active Substance: CICLOPIROX
  3. ELIQUIS [Concomitant]
     Active Substance: APIXABAN
  4. FLUOROURACIL [Concomitant]
     Active Substance: FLUOROURACIL
  5. GLIPIZIDE [Concomitant]
     Active Substance: GLIPIZIDE
  6. MELATONIN [Concomitant]
     Active Substance: MELATONIN
  7. METFORMIN [Concomitant]
     Active Substance: METFORMIN HYDROCHLORIDE
  8. VITAMINS [Concomitant]
     Active Substance: VITAMINS
  9. PAROXETINE [Concomitant]
     Active Substance: PAROXETINE
  10. PRAVASTATIN [Concomitant]
     Active Substance: PRAVASTATIN
  11. SODIUM BICARBONATE [Concomitant]
     Active Substance: SODIUM BICARBONATE
  12. SSD CREAM [Concomitant]
     Active Substance: SILVER SULFADIAZINE
  13. TAMSULOSIN [Concomitant]
     Active Substance: TAMSULOSIN
  14. VITAMIN D3 [Concomitant]
     Active Substance: CHOLECALCIFEROL

REACTIONS (1)
  - Infection [None]
